FAERS Safety Report 8915506 (Version 1)
Quarter: 2012Q4

REPORT INFORMATION
  Report Type: 
  Country: CH (occurrence: CH)
  Receive Date: 20121119
  Receipt Date: 20121119
  Transmission Date: 20130627
  Serious: Yes (Hospitalization)
  Sender: FDA-Public Use
  Company Number: CH-BAYER-2012-119633

PATIENT
  Age: 72 Year
  Sex: Male
  Weight: 82 kg

DRUGS (4)
  1. ASPIRIN CARDIO [Suspect]
     Route: 048
  2. MARCOUMAR [Suspect]
     Dosage: 3 mg, PRN
     Route: 048
     Dates: start: 20120723, end: 20120815
  3. PLAVIX [Suspect]
     Dosage: 75 g, QD
     Route: 048
     Dates: start: 20120723, end: 20120815
  4. CRESTOR [Concomitant]
     Dosage: 10 mg, QD
     Route: 048

REACTIONS (3)
  - Gastrointestinal haemorrhage [Recovered/Resolved]
  - Anaemia [Recovered/Resolved]
  - Melaena [Recovered/Resolved]
